FAERS Safety Report 4836004-4 (Version None)
Quarter: 2005Q4

REPORT INFORMATION
  Report Type: 
  Country: None (occurrence: None)
  Receive Date: 20051123
  Receipt Date: 20050608
  Transmission Date: 20060501
  Serious: Yes (Hospitalization)
  Sender: FDA-Public Use
  Company Number: HQWYE335409JUN05

PATIENT
  Sex: Female

DRUGS (9)
  1. ENBREL [Suspect]
     Indication: RHEUMATOID ARTHRITIS
     Route: 058
     Dates: start: 20050527, end: 20050607
  2. ISONIAZID [Concomitant]
     Dosage: DOSE AND FREQUENCY NOT SPECIFIED
     Route: 048
     Dates: start: 20050527
  3. RHEUMATREX [Concomitant]
     Dosage: DOSE AND FREQUENCY NOT SPECIFIED
     Route: 048
     Dates: start: 20030618
  4. BUCILLAMINE [Concomitant]
     Route: 065
     Dates: start: 20000501, end: 20050603
  5. LOXOPROFEN SODIUM [Concomitant]
  6. PREDNISOLONE [Concomitant]
  7. FERROUS CITRATE [Concomitant]
  8. REBAMIPIDE [Concomitant]
  9. FOLIC ACID [Concomitant]

REACTIONS (3)
  - CONSTIPATION [None]
  - ENTEROCOLITIS [None]
  - HYPOAESTHESIA ORAL [None]
